FAERS Safety Report 16010108 (Version 1)
Quarter: 2019Q1

REPORT INFORMATION
  Report Type: Report from Study
  Country: None (occurrence: BR)
  Receive Date: 20190225
  Receipt Date: 20190225
  Transmission Date: 20190418
  Serious: Yes (Hospitalization)
  Sender: FDA-Public Use
  Company Number: BR-ABBVIE-19K-020-2678474-00

PATIENT
  Age: 57 Year
  Sex: Female
  Weight: 50 kg

DRUGS (3)
  1. PREDNISONA [Concomitant]
     Active Substance: PREDNISONE
     Indication: RHEUMATOID ARTHRITIS
     Dates: end: 201811
  2. PREDNISONA [Concomitant]
     Active Substance: PREDNISONE
     Dates: start: 201901
  3. HUMIRA [Suspect]
     Active Substance: ADALIMUMAB
     Indication: RHEUMATOID ARTHRITIS
     Route: 058
     Dates: end: 201811

REACTIONS (6)
  - Helicobacter infection [Recovered/Resolved]
  - Malaise [Recovered/Resolved]
  - Hypophagia [Recovered/Resolved]
  - Crohn^s disease [Unknown]
  - Malaise [Recovering/Resolving]
  - Gastritis [Recovered/Resolved]

NARRATIVE: CASE EVENT DATE: 201704
